FAERS Safety Report 8303043-0 (Version None)
Quarter: 2012Q2

REPORT INFORMATION
  Report Type: 
  Country: None (occurrence: None)
  Receive Date: 20120422
  Receipt Date: 20120411
  Transmission Date: 20120825
  Serious: Yes (Hospitalization)
  Sender: FDA-Public Use
  Company Number: US-VERTEX PHARMACEUTICALS INC.-AE-2012-005196

PATIENT
  Sex: Male
  Weight: 46.762 kg

DRUGS (3)
  1. INCIVEK [Suspect]
     Indication: HEPATITIS C
     Route: 048
     Dates: start: 20120126
  2. RIBASPHERE [Concomitant]
     Indication: HEPATITIS C
     Dates: start: 20120126
  3. PEGASYS [Concomitant]
     Indication: HEPATITIS C
     Dates: start: 20120126

REACTIONS (1)
  - BLOOD COUNT ABNORMAL [None]
